FAERS Safety Report 7481589-5 (Version None)
Quarter: 2011Q2

REPORT INFORMATION
  Report Type: 
  Country: None (occurrence: None)
  Receive Date: 20110516
  Receipt Date: 20110512
  Transmission Date: 20111010
  Serious: Yes (Other)
  Sender: FDA-Public Use
  Company Number: CA-ROCHE-774674

PATIENT
  Sex: Male
  Weight: 105.2 kg

DRUGS (12)
  1. AVASTIN [Suspect]
     Indication: NEOPLASM
     Dosage: FORM: INFUSION
     Route: 042
     Dates: start: 20101112
  2. AVASTIN [Suspect]
     Route: 042
     Dates: start: 20110107
  3. LIPITOR [Concomitant]
  4. METHYLPEDNISOLONE SODIUM SUCCINATE [Concomitant]
     Indication: PREMEDICATION
     Route: 042
     Dates: start: 20110429, end: 20110429
  5. AVASTIN [Suspect]
     Route: 042
     Dates: start: 20101210
  6. PROCARBAZINE HYDROCHLORIDE [Concomitant]
  7. ACETAMINOPHEN [Concomitant]
     Indication: PREMEDICATION
     Route: 048
     Dates: start: 20110429, end: 20110429
  8. KEPPRA [Concomitant]
  9. ZOFRAN [Concomitant]
  10. TEMODAL [Concomitant]
  11. PLAVIX [Concomitant]
  12. DIPHENHYDRAMINE HYDROCHLORIDE [Concomitant]
     Indication: PREMEDICATION
     Route: 048
     Dates: start: 20110429, end: 20110429

REACTIONS (15)
  - BRAIN OEDEMA [None]
  - BLOOD GLUCOSE INCREASED [None]
  - MEAN PLATELET VOLUME DECREASED [None]
  - BLOOD CREATINE PHOSPHOKINASE INCREASED [None]
  - HIGH DENSITY LIPOPROTEIN DECREASED [None]
  - ALANINE AMINOTRANSFERASE INCREASED [None]
  - BLOOD BILIRUBIN INCREASED [None]
  - TRANSFERRIN SATURATION DECREASED [None]
  - GAMMA-GLUTAMYLTRANSFERASE INCREASED [None]
  - RED BLOOD CELL SEDIMENTATION RATE INCREASED [None]
  - BLOOD TRIGLYCERIDES INCREASED [None]
  - SERUM FERRITIN INCREASED [None]
  - ASPARTATE AMINOTRANSFERASE INCREASED [None]
  - IRON BINDING CAPACITY UNSATURATED INCREASED [None]
  - THYROXINE FREE DECREASED [None]
